FAERS Safety Report 9367447 (Version 1)
Quarter: 2013Q2

REPORT INFORMATION
  Report Type: Spontaneous
  Country: US (occurrence: US)
  Receive Date: 20130625
  Receipt Date: 20130625
  Transmission Date: 20140414
  Serious: No
  Sender: FDA-Public Use
  Company Number: US-ASTELLAS-2012US007182

PATIENT
  Age: 68 Year
  Sex: Female
  Weight: 83 kg

DRUGS (8)
  1. VESICARE [Suspect]
     Indication: HYPERTONIC BLADDER
     Dosage: 10 MG, UID/QD
     Route: 048
     Dates: start: 201206
  2. VESICARE [Suspect]
     Indication: URGE INCONTINENCE
  3. PENICILLIN                         /00000903/ [Concomitant]
     Indication: SINUSITIS
     Dosage: UNK
     Route: 065
  4. PENICILLIN                         /00000903/ [Concomitant]
     Indication: BRONCHITIS
  5. Z-PAK [Concomitant]
     Indication: SINUSITIS
     Dosage: UNK
     Route: 065
  6. Z-PAK [Concomitant]
     Indication: BRONCHITIS
  7. COUGH SYRUP [Concomitant]
     Indication: SINUSITIS
     Dosage: UNK
     Route: 065
  8. COUGH SYRUP [Concomitant]
     Indication: BRONCHITIS

REACTIONS (1)
  - Drug ineffective [Unknown]
